FAERS Safety Report 20675840 (Version 4)
Quarter: 2022Q2

REPORT INFORMATION
  Report Type: Spontaneous
  Country: US (occurrence: US)
  Receive Date: 20220405
  Receipt Date: 20220527
  Transmission Date: 20220721
  Serious: No
  Sender: FDA-Public Use
  Company Number: US-THERATECHNOLOGIES INC.-2022-THE-IBA-000066

PATIENT
  Age: 30 Year
  Sex: Male
  Weight: 113.83 kg

DRUGS (4)
  1. TROGARZO [Suspect]
     Active Substance: IBALIZUMAB-UIYK
     Indication: Acquired immunodeficiency syndrome
     Dosage: 2000 MG, LOAD
     Route: 042
     Dates: start: 20220318, end: 20220318
  2. TROGARZO [Suspect]
     Active Substance: IBALIZUMAB-UIYK
     Dosage: 800 MG, Q 2 WKS
     Route: 042
  3. DOVATO [Concomitant]
     Active Substance: DOLUTEGRAVIR SODIUM\LAMIVUDINE
     Indication: Acquired immunodeficiency syndrome
     Dosage: 50/300
     Route: 048
     Dates: start: 20210803
  4. BACTRIM DS [Concomitant]
     Active Substance: SULFAMETHOXAZOLE\TRIMETHOPRIM
     Indication: Antifungal prophylaxis
     Dosage: 800/160
     Route: 048
     Dates: start: 20210803

REACTIONS (3)
  - Muscle strain [Recovered/Resolved]
  - Pain in extremity [Recovered/Resolved]
  - Rash [Unknown]

NARRATIVE: CASE EVENT DATE: 20220328
